FAERS Safety Report 12396172 (Version 1)
Quarter: 2016Q2

REPORT INFORMATION
  Report Type: Spontaneous
  Country: ZA (occurrence: ZA)
  Receive Date: 20160524
  Receipt Date: 20160524
  Transmission Date: 20160815
  Serious: Yes (Life-Threatening)
  Sender: FDA-Public Use
  Company Number: ZA-ASTRAZENECA-2016SE41907

PATIENT
  Age: 62 Year
  Sex: Male

DRUGS (1)
  1. SYMBICORD [Suspect]
     Active Substance: BUDESONIDE\FORMOTEROL
     Indication: ASTHMA
     Dosage: 160/4.5 MCG, 2 INHALATIONS TWICE A DAY
     Route: 055

REACTIONS (4)
  - Extra dose administered [Unknown]
  - Drug ineffective [Unknown]
  - Myocardial infarction [Unknown]
  - Product quality issue [Unknown]
